FAERS Safety Report 13243460 (Version 1)
Quarter: 2017Q1

REPORT INFORMATION
  Report Type: Spontaneous
  Country: US (occurrence: US)
  Receive Date: 20170216
  Receipt Date: 20170216
  Transmission Date: 20170428
  Serious: No
  Sender: FDA-Public Use
  Company Number: US-MALLINCKRODT-T201600725

PATIENT
  Age: 0 Year
  Sex: Female

DRUGS (10)
  1. INOMAX [Suspect]
     Active Substance: NITRIC OXIDE
     Dosage: 12PPM, CONTINUOUS
     Dates: start: 20160215, end: 20160215
  2. INOMAX [Suspect]
     Active Substance: NITRIC OXIDE
     Dosage: 10PPM, CONTINUOUS
     Dates: start: 20160215, end: 20160216
  3. DOPAMINE [Concomitant]
     Active Substance: DOPAMINE\DOPAMINE HYDROCHLORIDE
     Dosage: UNK FLOW RATE AND TITRATION DETAILS
     Dates: start: 20160202, end: 20160215
  4. DOBUTAMINE [Concomitant]
     Active Substance: DOBUTAMINE\DOBUTAMINE HYDROCHLORIDE
     Dosage: UNK FLOW RATE AND TITRATION DETAILS
     Dates: start: 20160202, end: 20160210
  5. INOMAX [Suspect]
     Active Substance: NITRIC OXIDE
     Dosage: 16PPM, CONTINUOUS
     Dates: start: 20160213, end: 20160214
  6. INOMAX [Suspect]
     Active Substance: NITRIC OXIDE
     Dosage: 14PPM, CONTINUOUS
     Dates: start: 20160214, end: 20160215
  7. INOMAX [Suspect]
     Active Substance: NITRIC OXIDE
     Dosage: 20PPM, CONTINUOUS
     Dates: start: 20160216
  8. INOMAX [Suspect]
     Active Substance: NITRIC OXIDE
     Indication: PERSISTENT FOETAL CIRCULATION
     Dosage: 20PPM, CONTINUOUS
     Dates: start: 20160202, end: 20160213
  9. INOMAX [Suspect]
     Active Substance: NITRIC OXIDE
     Dosage: 18PPM, CONTINUOUS
     Dates: start: 20160213, end: 20160213
  10. INOMAX [Suspect]
     Active Substance: NITRIC OXIDE
     Dosage: 8PPM, CONTINUOUS
     Dates: start: 20160216, end: 20160216

REACTIONS (4)
  - Bilirubin conjugated increased [Unknown]
  - Skin discolouration [Not Recovered/Not Resolved]
  - Methaemoglobinaemia [Unknown]
  - Off label use [Unknown]

NARRATIVE: CASE EVENT DATE: 201602
